FAERS Safety Report 7639345-0 (Version None)
Quarter: 2011Q3

REPORT INFORMATION
  Report Type: 
  Country: None (occurrence: None)
  Receive Date: 20110727
  Receipt Date: 20110719
  Transmission Date: 20111222
  Serious: Yes (Other)
  Sender: FDA-Public Use
  Company Number: US-ABBOTT-11P-163-0840556-00

PATIENT
  Age: 61 Year
  Sex: Male

DRUGS (8)
  1. ASPIRIN [Concomitant]
     Indication: PRODUCT USED FOR UNKNOWN INDICATION
  2. PLAVIX [Concomitant]
     Indication: PRODUCT USED FOR UNKNOWN INDICATION
  3. LOPRESSOR [Concomitant]
     Indication: PRODUCT USED FOR UNKNOWN INDICATION
  4. NORVASC [Concomitant]
     Indication: PRODUCT USED FOR UNKNOWN INDICATION
  5. METFORMIN HCL [Concomitant]
     Indication: PRODUCT USED FOR UNKNOWN INDICATION
  6. HUMIRA [Suspect]
     Indication: RHEUMATOID ARTHRITIS
     Dates: start: 20030801, end: 20040601
  7. HUMIRA [Suspect]
     Dates: start: 20040601, end: 20110101
  8. METHOTREXATE [Concomitant]
     Indication: PRODUCT USED FOR UNKNOWN INDICATION

REACTIONS (11)
  - LYME DISEASE [None]
  - JOINT STIFFNESS [None]
  - DIABETES MELLITUS [None]
  - CORONARY ARTERY OCCLUSION [None]
  - ELECTROCARDIOGRAM T WAVE INVERSION [None]
  - Q FEVER [None]
  - FEMORAL NECK FRACTURE [None]
  - AORTIC VALVE STENOSIS [None]
  - ARTHRALGIA [None]
  - FALL [None]
  - ARTHRITIS [None]
